FAERS Safety Report 10585006 (Version 4)
Quarter: 2015Q1

REPORT INFORMATION
  Report Type: Report from Study
  Country: DE (occurrence: DE)
  Receive Date: 20141114
  Receipt Date: 20150129
  Transmission Date: 20150720
  Serious: Yes (Other)
  Sender: FDA-Public Use
  Company Number: DE-SA-2014SA120136

PATIENT
  Age: 45 Year
  Sex: Female
  Weight: 76 kg

DRUGS (2)
  1. AUBAGIO [Suspect]
     Active Substance: TERIFLUNOMIDE
     Indication: MULTIPLE SCLEROSIS
     Route: 048
     Dates: start: 20140401
  2. IBUPROFEN. [Concomitant]
     Active Substance: IBUPROFEN

REACTIONS (9)
  - Aspartate aminotransferase increased [Unknown]
  - Blood pressure increased [Not Recovered/Not Resolved]
  - Alopecia [Recovered/Resolved]
  - Haematochezia [Recovering/Resolving]
  - Heart rate increased [Not Recovered/Not Resolved]
  - Intestinal haemorrhage [Recovering/Resolving]
  - Fatigue [Unknown]
  - Alanine aminotransferase increased [Unknown]
  - Hepatic enzyme increased [Not Recovered/Not Resolved]

NARRATIVE: CASE EVENT DATE: 201404
